FAERS Safety Report 7248733-6 (Version None)
Quarter: 2011Q1

REPORT INFORMATION
  Report Type: 
  Country: None (occurrence: None)
  Receive Date: 20110128
  Receipt Date: 20110120
  Transmission Date: 20110831
  Serious: Yes (Other)
  Sender: FDA-Public Use
  Company Number: US-TEVA-264516USA

PATIENT
  Sex: Male

DRUGS (1)
  1. TAMSULOSIN HCL,CAPSULES 0.4 MG [Suspect]
     Indication: POLLAKIURIA
     Dates: start: 20090401

REACTIONS (10)
  - DIARRHOEA [None]
  - CHROMATURIA [None]
  - JAUNDICE [None]
  - FAECES DISCOLOURED [None]
  - MALABSORPTION [None]
  - WEIGHT DECREASED [None]
  - ABNORMAL FAECES [None]
  - PRURITUS GENERALISED [None]
  - BLOOD BILIRUBIN INCREASED [None]
  - LIVER INJURY [None]
